FAERS Safety Report 9618034 (Version 2)
Quarter: 2014Q2

REPORT INFORMATION
  Report Type: Spontaneous
  Country: JP (occurrence: JP)
  Receive Date: 20131012
  Receipt Date: 20140428
  Transmission Date: 20141212
  Serious: Yes (Hospitalization, Other)
  Sender: FDA-Public Use
  Company Number: JP-JNJFOC-20131001840

PATIENT
  Age: 50 Year
  Sex: Female
  Weight: 54 kg

DRUGS (2)
  1. NICOTINE PATCH [Suspect]
     Indication: EX-TOBACCO USER
     Dosage: 6 DAY USE OF NICOTINE PATCH WAS DESCRIBED
     Route: 065
  2. NICOTINELL (NICOTINE) [Suspect]
     Indication: EX-TOBACCO USER
     Route: 065

REACTIONS (1)
  - Cerebral vasoconstriction [Recovering/Resolving]
